FAERS Safety Report 18211323 (Version 3)
Quarter: 2021Q1

REPORT INFORMATION
  Report Type: Spontaneous
  Country: US (occurrence: US)
  Receive Date: 20200831
  Receipt Date: 20210218
  Transmission Date: 20210419
  Serious: No
  Sender: FDA-Public Use
  Company Number: US-ASTRAZENECA-2020SE99652

PATIENT
  Sex: Female

DRUGS (2)
  1. BYETTA [Suspect]
     Active Substance: EXENATIDE
     Dosage: DOSE UNKNOWN
     Route: 065
     Dates: start: 20200729
  2. BYETTA [Suspect]
     Active Substance: EXENATIDE
     Dosage: DOSE UNKNOWN
     Route: 065

REACTIONS (4)
  - Liquid product physical issue [Unknown]
  - Blood glucose increased [Unknown]
  - Intentional device misuse [Unknown]
  - Device ineffective [Unknown]

NARRATIVE: CASE EVENT DATE: 20200729
